FAERS Safety Report 8619631-8 (Version None)
Quarter: 2012Q3

REPORT INFORMATION
  Report Type: 
  Country: None (occurrence: None)
  Receive Date: 20120810
  Receipt Date: 20120725
  Transmission Date: 20120928
  Serious: Yes (Hospitalization, Other)
  Sender: FDA-Public Use
  Company Number: 2012MA009253

PATIENT
  Age: 17 Year
  Sex: Female

DRUGS (1)
  1. FEVERALL [Suspect]
     Dosage: 500 MG

REACTIONS (5)
  - RESPIRATORY RATE INCREASED [None]
  - MENTAL STATUS CHANGES [None]
  - OVERDOSE [None]
  - COMA [None]
  - METABOLIC ACIDOSIS [None]
